FAERS Safety Report 17668646 (Version 1)
Quarter: 2020Q2

REPORT INFORMATION
  Report Type: Spontaneous
  Country: US (occurrence: US)
  Receive Date: 20200415
  Receipt Date: 20200415
  Transmission Date: 20200713
  Serious: No
  Sender: FDA-Public Use
  Company Number: US-GLENMARK PHARMACEUTICALS-2020GMK045427

PATIENT

DRUGS (1)
  1. RANOLAZINE EXTENDED-RELEASE TABLETS, 500 MG [Suspect]
     Active Substance: RANOLAZINE
     Indication: PRODUCT USED FOR UNKNOWN INDICATION
     Dosage: UNK
     Route: 048

REACTIONS (3)
  - Product use complaint [Unknown]
  - Product size issue [Unknown]
  - Product shape issue [Unknown]
